FAERS Safety Report 25063243 (Version 2)
Quarter: 2025Q1

REPORT INFORMATION
  Report Type: Spontaneous
  Country: RU (occurrence: RU)
  Receive Date: 20250311
  Receipt Date: 20250314
  Transmission Date: 20250409
  Serious: Yes (Other)
  Sender: ROCHE
  Company Number: RU-ROCHE-10000222668

PATIENT
  Sex: Female

DRUGS (1)
  1. FARICIMAB [Suspect]
     Active Substance: FARICIMAB
     Indication: Neovascular age-related macular degeneration
     Route: 050

REACTIONS (2)
  - Papilloedema [Unknown]
  - Optic ischaemic neuropathy [Unknown]
